FAERS Safety Report 8622230-5 (Version None)
Quarter: 2012Q3

REPORT INFORMATION
  Report Type: 
  Country: None (occurrence: None)
  Receive Date: 20120827
  Receipt Date: 20120731
  Transmission Date: 20120928
  Serious: No
  Sender: FDA-Public Use
  Company Number: US-009507513-2012SP029442

PATIENT

DRUGS (1)
  1. IMPLANON [Suspect]
     Dates: start: 20091027, end: 20120530

REACTIONS (5)
  - DEVICE BREAKAGE [None]
  - IMPLANT SITE FIBROSIS [None]
  - EXPIRED DRUG ADMINISTERED [None]
  - MENSTRUATION IRREGULAR [None]
  - DEVICE DIFFICULT TO USE [None]
